FAERS Safety Report 6135027-5 (Version None)
Quarter: 2009Q1

REPORT INFORMATION
  Report Type: 
  Country: None (occurrence: None)
  Receive Date: 20090325
  Receipt Date: 20090308
  Transmission Date: 20090719
  Serious: Yes (Other)
  Sender: FDA-Public Use
  Company Number: 2007S1005435

PATIENT
  Age: 68 Year
  Sex: Female
  Weight: 60.782 kg

DRUGS (6)
  1. SODIUM PHOSPHATES [Suspect]
     Indication: COLONOSCOPY
     Dosage: PO
     Route: 048
     Dates: start: 20090323
  2. SYNTHROID [Concomitant]
  3. PRILOSEC [Concomitant]
  4. INSULIN [Concomitant]
  5. HYDROCHLOROTHIAZIDE [Concomitant]
  6. LIPITOR [Concomitant]

REACTIONS (7)
  - DIALYSIS [None]
  - DRUG TOXICITY [None]
  - HYPERPHOSPHATAEMIA [None]
  - NEPHROCALCINOSIS [None]
  - RENAL FAILURE [None]
  - RENAL FAILURE CHRONIC [None]
  - RENAL TUBULAR NECROSIS [None]
